FAERS Safety Report 13409463 (Version 3)
Quarter: 2022Q2

REPORT INFORMATION
  Report Type: Spontaneous
  Country: US (occurrence: US)
  Receive Date: 20170406
  Receipt Date: 20220512
  Transmission Date: 20220721
  Serious: No
  Sender: FDA-Public Use
  Company Number: US-JNJFOC-20170127163

PATIENT
  Age: 12 Year
  Sex: Male

DRUGS (12)
  1. RISPERDAL [Suspect]
     Active Substance: RISPERIDONE
     Indication: Learning disorder
     Route: 048
     Dates: start: 20031011
  2. RISPERDAL [Suspect]
     Active Substance: RISPERIDONE
     Indication: Anxiety
     Dosage: IN VARYING DOSES OF 0.5 MG, 1 MG AND 2 MG OF VARYING FREQUENCY
     Route: 048
     Dates: start: 20080709, end: 201206
  3. RISPERDAL [Suspect]
     Active Substance: RISPERIDONE
     Indication: Attention deficit hyperactivity disorder
     Route: 048
     Dates: end: 20140908
  4. RISPERDAL [Suspect]
     Active Substance: RISPERIDONE
     Indication: Behaviour disorder
  5. RISPERDAL [Suspect]
     Active Substance: RISPERIDONE
     Indication: Attention deficit hyperactivity disorder
     Dosage: DOSE: 1 TO 2 ML ONCE EVERY NIGHT
     Route: 048
     Dates: start: 20031011, end: 20031030
  6. RISPERDAL [Suspect]
     Active Substance: RISPERIDONE
     Indication: Learning disorder
  7. RISPERDAL [Suspect]
     Active Substance: RISPERIDONE
     Indication: Anxiety
  8. RISPERDAL [Suspect]
     Active Substance: RISPERIDONE
     Indication: Behaviour disorder
  9. RISPERIDONE [Suspect]
     Active Substance: RISPERIDONE
     Indication: Attention deficit hyperactivity disorder
     Dosage: IN VARYING DOSES OF 0.25 MG, 0.5 MG, 1 MG AND 2 MG
     Route: 065
     Dates: start: 20110801, end: 20140908
  10. RISPERIDONE [Suspect]
     Active Substance: RISPERIDONE
     Indication: Anxiety
  11. RISPERIDONE [Suspect]
     Active Substance: RISPERIDONE
     Indication: Learning disorder
  12. RISPERIDONE [Suspect]
     Active Substance: RISPERIDONE
     Indication: Behaviour disorder

REACTIONS (5)
  - Obesity [Not Recovered/Not Resolved]
  - Emotional disorder [Unknown]
  - Gynaecomastia [Unknown]
  - Somnolence [Unknown]
  - Increased appetite [Recovering/Resolving]

NARRATIVE: CASE EVENT DATE: 20100701
